FAERS Safety Report 4485588-7 (Version None)
Quarter: 2004Q4

REPORT INFORMATION
  Report Type: 
  Country: None (occurrence: None)
  Receive Date: 20041021
  Receipt Date: 20040216
  Transmission Date: 20050328
  Serious: Yes (Death, Life-Threatening, Hospitalization)
  Sender: FDA-Public Use
  Company Number: F01200400286

PATIENT
  Age: 63 Year
  Sex: Female

DRUGS (24)
  1. (OXALIPLATIN) - SOLUTION - 233 MG [Suspect]
     Indication: COLON CANCER
     Dosage: 233 MG Q3W INTRAVENOUS NOS
     Route: 042
     Dates: start: 20040120, end: 20040120
  2. CAPECITABINE - TABLET - 1800 MG [Suspect]
     Dosage: 1800 MG TWICE A DAY PER ORAL FROM D1 TO D15, ORAL
     Route: 048
     Dates: start: 20040120, end: 20040203
  3. WELLBUTRIN (BUPROFEN HCL) [Concomitant]
  4. PROZAC [Concomitant]
  5. LEVOTHROID [Concomitant]
  6. CALTRATE CALCIUM CARBONATE) [Concomitant]
  7. COUMADIN [Concomitant]
  8. ACIPHEX [Concomitant]
  9. PROTONIX [Concomitant]
  10. ACETAMINOPHEN [Concomitant]
  11. TEMAZEPAM [Concomitant]
  12. CIPRO [Concomitant]
  13. ZOFRAN (ONDANSETRON HYDROHCLORIDE) [Concomitant]
  14. AMBIEN [Concomitant]
  15. HALDAL (HALOPERIDOL) [Concomitant]
  16. ATIVAN [Concomitant]
  17. RISPERDAL [Concomitant]
  18. SANOSTATIN (OCTREOTIDE) [Concomitant]
  19. VITAMIN K [Concomitant]
  20. HEPARIN SODIUM [Concomitant]
  21. MULTI-VITAMINS [Concomitant]
  22. SODIUM CHLORIDE 0.9% AND POTASSIUM CHLORIDE 20MEQ [Concomitant]
  23. MAALOX (ALUMINIUM HYDROXIDE+CALCUM CARBONATE+MAGNESIUM HYDROXIDE) [Concomitant]
  24. ETOMIDATE [Concomitant]

REACTIONS (25)
  - ABDOMINAL PAIN [None]
  - ACIDOSIS [None]
  - AGITATION [None]
  - AMMONIA INCREASED [None]
  - ATELECTASIS [None]
  - BELLIGERENCE [None]
  - BRONCHOPNEUMONIA [None]
  - CANDIDIASIS [None]
  - CIRCULATORY COLLAPSE [None]
  - CONFUSIONAL STATE [None]
  - DEHYDRATION [None]
  - DIARRHOEA [None]
  - DISORIENTATION [None]
  - DYSPHAGIA [None]
  - ENCEPHALOPATHY [None]
  - HYPOTENSION [None]
  - ILEUS [None]
  - MUCOSAL INFLAMMATION [None]
  - NAUSEA [None]
  - PNEUMONIA ESCHERICHIA [None]
  - PO2 DECREASED [None]
  - RENAL FAILURE [None]
  - RESPIRATORY DISTRESS [None]
  - SEPTIC SHOCK [None]
  - VOMITING [None]
